FAERS Safety Report 24389478 (Version 1)
Quarter: 2024Q4

REPORT INFORMATION
  Report Type: Spontaneous
  Country: US (occurrence: US)
  Receive Date: 20241003
  Receipt Date: 20241003
  Transmission Date: 20250115
  Serious: Yes (Other)
  Sender: STRIDES
  Company Number: None

PATIENT
  Age: 3 Decade
  Sex: Male

DRUGS (12)
  1. PREDNISOLONE [Suspect]
     Active Substance: PREDNISOLONE
     Indication: Poikiloderma
     Dosage: 60 MILLIGRAM 4-WEEK TRIAL OF PREDNISONE (60?MG ? 2 WEEKS, 40?MG ? 1?WEEK, 60?MG ? 1?WEEK)
     Route: 065
  2. PREDNISOLONE [Suspect]
     Active Substance: PREDNISOLONE
     Dosage: 40 MILLIGRAM 4-WEEK TRIAL OF PREDNISONE (60?MG ? 2 WEEKS, 40?MG ? 1?WEEK, 60?MG ? 1?WEEK)
     Route: 065
  3. PREDNISOLONE [Suspect]
     Active Substance: PREDNISOLONE
     Dosage: 60 MILLIGRAM 4-WEEK TRIAL OF PREDNISONE (60?MG ? 2 WEEKS, 40?MG ? 1?WEEK, 60?MG ? 1?WEEK)
     Route: 065
  4. METHYLPREDNISOLONE [Suspect]
     Active Substance: METHYLPREDNISOLONE
     Indication: Dermatomyositis
     Dosage: 48 MILLIGRAM, QD
     Route: 042
  5. METHYLPREDNISOLONE [Suspect]
     Active Substance: METHYLPREDNISOLONE
     Indication: Immunosuppressant drug therapy
  6. CEFTRIAXONE [Concomitant]
     Active Substance: CEFTRIAXONE
     Indication: Diverticulitis
     Dosage: UNK
     Route: 042
  7. HEPARIN [Concomitant]
     Active Substance: HEPARIN SODIUM
     Indication: Anticoagulant therapy
     Dosage: UNK
     Route: 042
  8. HEPARIN [Concomitant]
     Active Substance: HEPARIN SODIUM
     Indication: Pulmonary embolism
  9. TACROLIMUS [Concomitant]
     Active Substance: TACROLIMUS
     Indication: Dermatomyositis
     Dosage: 1 MILLIGRAM, EVERY 12 HRS
     Route: 048
  10. METRONIDAZOLE [Concomitant]
     Active Substance: METRONIDAZOLE
     Indication: Diverticulitis
     Dosage: UNK
     Route: 042
  11. MYCOPHENOLATE MOFETIL [Concomitant]
     Active Substance: MYCOPHENOLATE MOFETIL
     Indication: Dermatomyositis
     Dosage: 500 MILLIGRAM, QD   (500?MG DAILY ORALLY FOR 9 MONTHS)
     Route: 048
  12. MYCOPHENOLATE MOFETIL [Concomitant]
     Active Substance: MYCOPHENOLATE MOFETIL
     Dosage: INCREASED
     Route: 048

REACTIONS (1)
  - Substance-induced psychotic disorder [Unknown]
